FAERS Safety Report 4957676-X (Version None)
Quarter: 2006Q1

REPORT INFORMATION
  Report Type: 
  Country: None (occurrence: None)
  Receive Date: 20060324
  Receipt Date: 20060307
  Transmission Date: 20060701
  Serious: Yes (Other)
  Sender: FDA-Public Use
  Company Number: US200603001815

PATIENT
  Age: 59 Year
  Sex: Female

DRUGS (4)
  1. FORTEO [Suspect]
     Indication: OSTEOPOROSIS
     Dates: start: 20030724, end: 20050310
  2. FORTEO PEN (FORTOE PEN) PEN, DISPOSABLE [Concomitant]
  3. PREVACID [Concomitant]
  4. CITRACAL (CALCIUM CITRATE) [Concomitant]

REACTIONS (17)
  - ANXIETY [None]
  - ARTHRALGIA [None]
  - BACK INJURY [None]
  - BONE PAIN [None]
  - CEREBROVASCULAR ACCIDENT [None]
  - EYE PAIN [None]
  - FALL [None]
  - HEADACHE [None]
  - HYPOAESTHESIA [None]
  - INJECTION SITE REACTION [None]
  - INSOMNIA [None]
  - INTERVERTEBRAL DISC PROTRUSION [None]
  - LIGAMENT INJURY [None]
  - MENISCUS LESION [None]
  - MIGRAINE [None]
  - NUCLEAR MAGNETIC RESONANCE IMAGING BRAIN ABNORMAL [None]
  - STRESS [None]
